FAERS Safety Report 20423923 (Version 1)
Quarter: 2022Q1

REPORT INFORMATION
  Report Type: Spontaneous
  Country: JP (occurrence: JP)
  Receive Date: 20220203
  Receipt Date: 20220203
  Transmission Date: 20220423
  Serious: Yes (Other)
  Sender: FDA-Public Use
  Company Number: JP-TAKEDA-2021TJP116792

PATIENT

DRUGS (1)
  1. CABOMETYX [Suspect]
     Active Substance: CABOZANTINIB S-MALATE
     Indication: Hepatocellular carcinoma
     Dosage: UNK
     Route: 048

REACTIONS (14)
  - Hypothyroidism [Unknown]
  - Blood albumin decreased [Unknown]
  - Diarrhoea [Unknown]
  - Palmar-plantar erythrodysaesthesia syndrome [Unknown]
  - Proteinuria [Unknown]
  - Hepatocellular carcinoma [Unknown]
  - Disease progression [Unknown]
  - Malaise [Unknown]
  - Blood bilirubin increased [Unknown]
  - Alanine aminotransferase increased [Unknown]
  - Aspartate aminotransferase increased [Unknown]
  - Dysphonia [Unknown]
  - Decreased appetite [Unknown]
  - Hypertension [Unknown]

NARRATIVE: CASE EVENT DATE: 20211108
